FAERS Safety Report 20876183 (Version 1)
Quarter: 2022Q2

REPORT INFORMATION
  Report Type: Report from Study
  Country: CA (occurrence: CA)
  Receive Date: 20220526
  Receipt Date: 20220526
  Transmission Date: 20220721
  Serious: Yes (Other)
  Sender: FDA-Public Use
  Company Number: CA-TAKEDA-2022TUS033816

PATIENT
  Age: 68 Year
  Sex: Male

DRUGS (13)
  1. VEDOLIZUMAB [Suspect]
     Active Substance: VEDOLIZUMAB
     Indication: Colitis ulcerative
     Dosage: 300 MILLIGRAM
     Route: 042
     Dates: start: 20180118
  2. VEDOLIZUMAB [Suspect]
     Active Substance: VEDOLIZUMAB
     Dosage: 300 MILLIGRAM, Q4WEEKS
     Route: 042
     Dates: start: 20211202
  3. VITAMIN D NOS [Concomitant]
     Active Substance: VITAMIN D NOS
     Dosage: UNK UNK, BID
  4. PREDNISONE [Concomitant]
     Active Substance: PREDNISONE
     Dosage: 2.5 MILLIGRAM, QD
  5. IMODIUM [Concomitant]
     Active Substance: LOPERAMIDE HYDROCHLORIDE
     Dosage: UNK
  6. ATORVASTATIN [Concomitant]
     Active Substance: ATORVASTATIN
     Dosage: 20 MILLIGRAM, QD
  7. MAGNESIUM [Concomitant]
     Active Substance: MAGNESIUM
     Dosage: UNK UNK, QD
  8. MESALAMINE [Concomitant]
     Active Substance: MESALAMINE
     Dosage: 1.2 GRAM, QID
  9. ASPIRIN [Concomitant]
     Active Substance: ASPIRIN
     Dosage: 350 MILLIGRAM, QD
  10. PANTOPRAZOLE [Concomitant]
     Active Substance: PANTOPRAZOLE
     Dosage: 40 MILLIGRAM, QD
  11. SYNTHROID [Concomitant]
     Active Substance: LEVOTHYROXINE SODIUM
     Dosage: 1 MILLIGRAM, QD
  12. LISINOPRIL [Concomitant]
     Active Substance: LISINOPRIL
     Dosage: 12.5 MILLIGRAM, QD
  13. SODIUM FLUORIDE [Concomitant]
     Active Substance: SODIUM FLUORIDE
     Dosage: UNK UNK, BID

REACTIONS (3)
  - Dislocation of vertebra [Unknown]
  - Nerve compression [Unknown]
  - Off label use [Unknown]

NARRATIVE: CASE EVENT DATE: 20211202
